FAERS Safety Report 8645009 (Version 2)
Quarter: 2015Q1

REPORT INFORMATION
  Report Type: Spontaneous
  Country: US (occurrence: None)
  Receive Date: 20120619
  Receipt Date: 20150211
  Transmission Date: 20150721
  Serious: Yes (Hospitalization, Other)
  Sender: FDA-Public Use
  Company Number: KV201200100

PATIENT
  Age: 27 Year
  Sex: Female

DRUGS (4)
  1. ZOFRAN /00955301/ (ONDANSETRON) [Concomitant]
  2. PRENATAL VITAMINS /01549301/ (ASCORBIC ACID, BIOTIN, MINERALS NOS, NICOTINIC ACID, RETINOL, TOCOPHEROL, VITAMIN B NOS, VITAMIN D NOS) [Concomitant]
  3. MAKENA [Suspect]
     Active Substance: HYDROXYPROGESTERONE CAPROATE
     Indication: PREMATURE DELIVERY
     Dosage: 250 MG, ONCE WEEKLY, INTRAMUSCULAR
     Route: 030
     Dates: start: 20120123, end: 20120529
  4. XENADRINE RFA-1 /01521201/ (ACETYLCARNITINE, CITRUS AURANTIUM, EPHEDRA SPP., LEVOTHYROXINE, PANTOTHENIC ACID, PAULLINIA CUPANA, SALIX ALBA BARK, ZINGIBER OFFICINALE RHIZOME) [Concomitant]

REACTIONS (3)
  - Premature delivery [None]
  - Maternal exposure during pregnancy [None]
  - Premature rupture of membranes [None]

NARRATIVE: CASE EVENT DATE: 20120605
